FAERS Safety Report 13841408 (Version 1)
Quarter: 2017Q3

REPORT INFORMATION
  Report Type: Spontaneous
  Country: US (occurrence: US)
  Receive Date: 20170807
  Receipt Date: 20170807
  Transmission Date: 20171127
  Serious: No
  Sender: FDA-Public Use
  Company Number: US-BAYER-2017-150123

PATIENT
  Sex: Female
  Weight: 113 kg

DRUGS (1)
  1. BAYER EXTRA STRENGTH PM [Suspect]
     Active Substance: ASPIRIN\DIPHENHYDRAMINE
     Indication: PAIN
     Route: 048

REACTIONS (1)
  - Drug ineffective [Unknown]
